FAERS Safety Report 5932247-7 (Version None)
Quarter: 2008Q4

REPORT INFORMATION
  Report Type: 
  Country: None (occurrence: None)
  Receive Date: 20081028
  Receipt Date: 20081022
  Transmission Date: 20090506
  Serious: Yes (Congenital Anomaly, Other)
  Sender: FDA-Public Use
  Company Number: FR-BRISTOL-MYERS SQUIBB COMPANY-14332951

PATIENT
  Age: 34 Year
  Sex: Female
  Weight: 92 kg

DRUGS (5)
  1. REYATAZ [Suspect]
     Indication: HIV INFECTION
     Route: 048
     Dates: start: 20060917, end: 20070703
  2. SUSTIVA [Suspect]
     Indication: HIV INFECTION
     Route: 048
     Dates: start: 20060914, end: 20060917
  3. TRUVADA [Suspect]
     Indication: HIV INFECTION
     Route: 048
     Dates: start: 20060914
  4. NORVIR [Suspect]
     Indication: HIV INFECTION
     Route: 048
     Dates: start: 20060917, end: 20070703
  5. KALETRA [Suspect]
     Indication: HIV INFECTION
     Route: 048

REACTIONS (3)
  - ABORTION INDUCED [None]
  - PREGNANCY [None]
  - RENAL DYSPLASIA [None]
